FAERS Safety Report 7917609-0 (Version None)
Quarter: 2011Q4

REPORT INFORMATION
  Report Type: 
  Country: None (occurrence: None)
  Receive Date: 20111116
  Receipt Date: 20111109
  Transmission Date: 20120403
  Serious: Yes (Hospitalization)
  Sender: FDA-Public Use
  Company Number: NL-MEDIMMUNE-MEDI-0013877

PATIENT
  Sex: Female
  Weight: 4.98 kg

DRUGS (4)
  1. SYNAGIS [Suspect]
     Indication: PREMATURE BABY
     Route: 030
     Dates: start: 20110914, end: 20111011
  2. SYNAGIS [Suspect]
     Route: 030
     Dates: start: 20111109, end: 20111109
  3. FERROFUMERAAT [Concomitant]
  4. ERGOCALCIFEROL [Concomitant]

REACTIONS (4)
  - NASOPHARYNGITIS [None]
  - COUGH [None]
  - SOMNOLENCE [None]
  - DYSPNOEA [None]
